FAERS Safety Report 24199108 (Version 4)
Quarter: 2025Q3

REPORT INFORMATION
  Report Type: Report from Study
  Country: ZA (occurrence: ZA)
  Receive Date: 20240812
  Receipt Date: 20250715
  Transmission Date: 20251021
  Serious: Yes (Other)
  Sender: TAKEDA
  Company Number: ZA-TAKEDA-2023TUS004321

PATIENT
  Sex: Female

DRUGS (1)
  1. VEDOLIZUMAB [Suspect]
     Active Substance: VEDOLIZUMAB
     Indication: Crohn^s disease

REACTIONS (11)
  - Crohn^s disease [Unknown]
  - Haematochezia [Unknown]
  - Fatigue [Recovered/Resolved]
  - Illness [Not Recovered/Not Resolved]
  - Confusional state [Not Recovered/Not Resolved]
  - Somnolence [Not Recovered/Not Resolved]
  - Abdominal pain upper [Not Recovered/Not Resolved]
  - Hypotension [Unknown]
  - Hypophagia [Unknown]
  - Headache [Not Recovered/Not Resolved]
  - Inappropriate schedule of product administration [Recovered/Resolved]
